FAERS Safety Report 5191578-1 (Version None)
Quarter: 2006Q4

REPORT INFORMATION
  Report Type: 
  Country: None (occurrence: None)
  Receive Date: 20061220
  Receipt Date: 20061220
  Transmission Date: 20070319
  Serious: Yes (Other)
  Sender: FDA-Public Use
  Company Number: None

PATIENT
  Sex: Male
  Weight: 104.3273 kg

DRUGS (1)
  1. LIPITOR [Suspect]
     Indication: BLOOD CHOLESTEROL INCREASED
     Dosage: 1 PILL 1 PER DAY PO
     Route: 048
     Dates: start: 19990601, end: 20050401

REACTIONS (3)
  - BACK PAIN [None]
  - NERVE COMPRESSION [None]
  - PAIN IN EXTREMITY [None]
